FAERS Safety Report 5046047-6 (Version None)
Quarter: 2006Q3

REPORT INFORMATION
  Report Type: 
  Country: None (occurrence: None)
  Receive Date: 20060710
  Receipt Date: 20060704
  Transmission Date: 20061208
  Serious: Yes (Hospitalization)
  Sender: FDA-Public Use
  Company Number: FR-SANOFI-SYNTHELABO-A02200601764

PATIENT
  Age: 52 Year
  Sex: Female
  Weight: 54 kg

DRUGS (5)
  1. VERAPAMIL [Concomitant]
     Indication: HYPERTENSION
     Dosage: UNK
     Route: 048
  2. NOROXIN [Concomitant]
     Indication: CYSTITIS
     Route: 048
     Dates: start: 20060527, end: 20060531
  3. FOLINORAL [Concomitant]
     Indication: COLON CANCER
     Route: 048
     Dates: start: 20060529, end: 20060529
  4. FLUOROURACILE TEVA [Suspect]
     Indication: COLON CANCER
     Route: 042
     Dates: start: 20060529, end: 20060530
  5. ELOXATIN [Suspect]
     Indication: COLON CANCER
     Route: 042
     Dates: start: 20060529, end: 20060529

REACTIONS (1)
  - AGRANULOCYTOSIS [None]
